FAERS Safety Report 10078432 (Version 1)
Quarter: 2014Q2

REPORT INFORMATION
  Report Type: Spontaneous
  Country: US (occurrence: None)
  Receive Date: 20140403
  Receipt Date: 20140403
  Transmission Date: 20141212
  Serious: Yes (Hospitalization)
  Sender: FDA-Public Use
  Company Number: UTC-045098

PATIENT
  Age: 41 Year
  Sex: Male
  Weight: 48.6 kg

DRUGS (2)
  1. TYVASO [Suspect]
     Indication: PULMONARY ARTERIAL HYPERTENSION
     Route: 055
     Dates: start: 20120829, end: 201312
  2. TRACLEER (BOSENTAN) [Concomitant]

REACTIONS (3)
  - Hypotension [None]
  - Full blood count decreased [None]
  - Therapy cessation [None]
